FAERS Safety Report 6432870-X (Version None)
Quarter: 2009Q4

REPORT INFORMATION
  Report Type: 
  Country: None (occurrence: None)
  Receive Date: 20091109
  Receipt Date: 20091102
  Transmission Date: 20100525
  Serious: Yes (Other)
  Sender: FDA-Public Use
  Company Number: B0602560A

PATIENT
  Age: 43 Year
  Sex: Male

DRUGS (6)
  1. TELZIR [Suspect]
     Indication: HIV INFECTION
     Dosage: 700MG PER DAY
     Route: 048
  2. TRUVADA [Suspect]
     Indication: HIV INFECTION
     Route: 048
  3. NORVIR [Suspect]
     Indication: HIV INFECTION
     Dosage: 100MG PER DAY
     Route: 048
  4. TACROLIMUS [Suspect]
     Indication: LIVER TRANSPLANT
     Dosage: 10MG PER DAY
     Route: 048
     Dates: start: 20090726
  5. SEGURIL [Concomitant]
     Indication: DRUG USE FOR UNKNOWN INDICATION
     Route: 048
  6. ALDACTONE [Concomitant]
     Indication: DRUG USE FOR UNKNOWN INDICATION
     Dosage: 100MG PER DAY
     Route: 048

REACTIONS (2)
  - ACIDOSIS [None]
  - HYPERKALAEMIA [None]
